FAERS Safety Report 11598044 (Version 1)
Quarter: 2015Q4

REPORT INFORMATION
  Report Type: Spontaneous
  Country: US (occurrence: US)
  Receive Date: 20151006
  Receipt Date: 20151006
  Transmission Date: 20160304
  Serious: No
  Sender: FDA-Public Use
  Company Number: US-ROCHE-1480930

PATIENT
  Sex: Male

DRUGS (3)
  1. TAGAMET [Concomitant]
     Active Substance: CIMETIDINE
  2. ASPIRIN. [Concomitant]
     Active Substance: ASPIRIN
  3. ERIVEDGE [Suspect]
     Active Substance: VISMODEGIB
     Indication: SKIN CANCER
     Route: 048
     Dates: start: 20140910

REACTIONS (4)
  - Muscle spasms [Unknown]
  - Dysgeusia [Unknown]
  - Pain [Unknown]
  - Arthralgia [Unknown]
